FAERS Safety Report 4918648-4 (Version None)
Quarter: 2006Q1

REPORT INFORMATION
  Report Type: 
  Country: None (occurrence: None)
  Receive Date: 20060221
  Receipt Date: 20060221
  Transmission Date: 20060701
  Serious: No
  Sender: FDA-Public Use
  Company Number: None

PATIENT
  Age: 46 Year
  Sex: Female
  Weight: 72.5755 kg

DRUGS (3)
  1. CIPROFLOXACIN 250 [Suspect]
     Indication: DIARRHOEA
     Dosage: 250  2 A DAY PO
     Route: 048
     Dates: start: 20040903, end: 20040908
  2. CIPROFLOXACIN 250 [Suspect]
     Indication: ESCHERICHIA INFECTION
     Dosage: 250  2 A DAY PO
     Route: 048
     Dates: start: 20040903, end: 20040908
  3. CIPROFLOXACIN 250 [Suspect]
     Indication: FALSE POSITIVE LABORATORY RESULT
     Dosage: 250  2 A DAY PO
     Route: 048
     Dates: start: 20040903, end: 20040908

REACTIONS (10)
  - BALANCE DISORDER [None]
  - COGNITIVE DISORDER [None]
  - DIZZINESS [None]
  - FATIGUE [None]
  - ISCHAEMIA [None]
  - MYOCLONUS [None]
  - PAIN [None]
  - PAIN IN EXTREMITY [None]
  - PARAESTHESIA [None]
  - VISION BLURRED [None]
